FAERS Safety Report 5023362-3 (Version None)
Quarter: 2006Q2

REPORT INFORMATION
  Report Type: 
  Country: None (occurrence: None)
  Receive Date: 20060612
  Receipt Date: 20060531
  Transmission Date: 20061013
  Serious: Yes (Other)
  Sender: FDA-Public Use
  Company Number: PHHO2006CL08995

PATIENT
  Age: 74 Year
  Sex: Female

DRUGS (2)
  1. TAREG [Suspect]
     Dosage: 160MG
     Dates: start: 20020101
  2. ASPIRIN [Concomitant]

REACTIONS (1)
  - RENAL DISORDER [None]
